FAERS Safety Report 9626105 (Version 2)
Quarter: 2013Q4

REPORT INFORMATION
  Report Type: Spontaneous
  Country: US (occurrence: US)
  Receive Date: 20131016
  Receipt Date: 20131016
  Transmission Date: 20140711
  Serious: No
  Sender: FDA-Public Use
  Company Number: US-MYLANLABS-2013S1018606

PATIENT
  Age: 69 Year
  Sex: Male

DRUGS (9)
  1. VALSARTAN AND HYDROCHLOROTHIAZIDE TABLETS [Suspect]
     Indication: BLOOD PRESSURE INCREASED
     Dates: start: 201304, end: 2013
  2. VALSARTAN AND HYDROCHLOROTHIAZIDE TABLETS [Suspect]
     Indication: BLOOD PRESSURE INCREASED
     Dates: start: 201308, end: 2013
  3. MUCINEX [Concomitant]
  4. ASPIRIN [Concomitant]
  5. PLAVIX [Concomitant]
  6. LIPITOR [Concomitant]
  7. ACIPHEX [Concomitant]
  8. SPIRIVA [Concomitant]
  9. ADVAIR [Concomitant]

REACTIONS (3)
  - Drug ineffective [Recovered/Resolved]
  - Blood pressure abnormal [Recovered/Resolved]
  - Chest pain [Recovered/Resolved]
